FAERS Safety Report 6630188-3 (Version None)
Quarter: 2010Q1

REPORT INFORMATION
  Report Type: 
  Country: None (occurrence: None)
  Receive Date: 20100311
  Receipt Date: 20100304
  Transmission Date: 20100710
  Serious: Yes (Other)
  Sender: FDA-Public Use
  Company Number: B0639063A

PATIENT
  Sex: Male

DRUGS (1)
  1. CIGANON CQ1 [Suspect]
     Indication: SMOKING CESSATION THERAPY
     Dosage: 14MG PER DAY
     Route: 062
     Dates: start: 20100226

REACTIONS (3)
  - DIZZINESS POSTURAL [None]
  - NASAL CONGESTION [None]
  - RESPIRATORY DISTRESS [None]
